FAERS Safety Report 7132922-5 (Version None)
Quarter: 2010Q4

REPORT INFORMATION
  Report Type: 
  Country: None (occurrence: None)
  Receive Date: 20101202
  Receipt Date: 20101202
  Transmission Date: 20110411
  Serious: Yes (Other)
  Sender: FDA-Public Use
  Company Number: US-PFIZER INC-2010128815

PATIENT
  Sex: Female

DRUGS (2)
  1. FLAGYL [Suspect]
     Dosage: UNK
     Route: 042
     Dates: start: 20100714, end: 20100721
  2. FLAGYL [Suspect]

REACTIONS (2)
  - IMPAIRED DRIVING ABILITY [None]
  - NEUROPATHY PERIPHERAL [None]
